FAERS Safety Report 9333953 (Version 1)
Quarter: 2013Q2

REPORT INFORMATION
  Report Type: Spontaneous
  Country: US (occurrence: US)
  Receive Date: 20130606
  Receipt Date: 20130606
  Transmission Date: 20140414
  Serious: No
  Sender: FDA-Public Use
  Company Number: US-AMGEN-USASP2013011746

PATIENT
  Age: 67 Year
  Sex: Female

DRUGS (7)
  1. PROLIA [Suspect]
     Indication: OSTEOPOROSIS POSTMENOPAUSAL
     Dosage: UNK
     Dates: start: 20130111
  2. CALCIUM WITH VITAMIN D             /00944201/ [Concomitant]
  3. MULTIVITAMIN                       /00097801/ [Concomitant]
  4. BABY ASPIRIN [Concomitant]
  5. BIOTIN [Concomitant]
  6. FISH OIL [Concomitant]
  7. OMEPRAZOLE [Concomitant]

REACTIONS (11)
  - Injection site pain [Recovered/Resolved]
  - Injection site urticaria [Recovered/Resolved]
  - Injection site swelling [Recovered/Resolved]
  - Injection site bruising [Recovered/Resolved]
  - Injection site vesicles [Recovered/Resolved]
  - Injection site discolouration [Recovered/Resolved]
  - Discomfort [Recovered/Resolved]
  - Tooth disorder [Unknown]
  - Pruritus [Recovered/Resolved]
  - Papule [Unknown]
  - Patient-device incompatibility [Unknown]
